FAERS Safety Report 19757819 (Version 1)
Quarter: 2021Q3

REPORT INFORMATION
  Report Type: Report from Study
  Country: None (occurrence: DE)
  Receive Date: 20210828
  Receipt Date: 20210828
  Transmission Date: 20211014
  Serious: Yes (Hospitalization, Other)
  Sender: FDA-Public Use
  Company Number: DE-ABBVIE-21K-062-4054545-00

PATIENT
  Age: 63 Year
  Sex: Female
  Weight: 70 kg

DRUGS (2)
  1. SKYRIZI [Suspect]
     Active Substance: RISANKIZUMAB-RZAA
     Indication: PSORIASIS
     Route: 058
     Dates: start: 20200812, end: 20201216
  2. NOVALGIN [Concomitant]
     Indication: PAIN
     Dosage: DROPS  IF NECESSARY, STARTED FOR YEARS
     Route: 048

REACTIONS (8)
  - Abdominal operation [Recovered/Resolved]
  - Wound secretion [Unknown]
  - Blood test abnormal [Recovered/Resolved]
  - Scar [Unknown]
  - Chills [Recovered/Resolved]
  - Blister [Recovered/Resolved]
  - Gastrointestinal inflammation [Recovered/Resolved]
  - Pyrexia [Recovered/Resolved]

NARRATIVE: CASE EVENT DATE: 2021
